FAERS Safety Report 17209947 (Version 3)
Quarter: 2020Q1

REPORT INFORMATION
  Report Type: Spontaneous
  Country: CZ (occurrence: CZ)
  Receive Date: 20191227
  Receipt Date: 20200311
  Transmission Date: 20200409
  Serious: Yes (Life-Threatening, Hospitalization, Other)
  Sender: FDA-Public Use
  Company Number: CZ-BAUSCH-BL-2019-066355

PATIENT
  Age: 73 Year
  Sex: Female

DRUGS (12)
  1. ZOLPIDEM [Suspect]
     Active Substance: ZOLPIDEM TARTRATE
     Indication: DEPRESSION
  2. MIRTAZAPINE. [Suspect]
     Active Substance: MIRTAZAPINE
     Indication: PSYCHIATRIC DISORDER PROPHYLAXIS
  3. VENLAFAXINE [Suspect]
     Active Substance: VENLAFAXINE HYDROCHLORIDE
     Indication: DEPRESSION
  4. MIRTAZAPINE. [Suspect]
     Active Substance: MIRTAZAPINE
     Indication: MENTAL DISORDER
     Route: 048
  5. AMISULPRIDE [Suspect]
     Active Substance: AMISULPRIDE
     Indication: PSYCHIATRIC DISORDER PROPHYLAXIS
     Dosage: 200 TO 400 MG
     Route: 048
  6. VENLAFAXINE [Suspect]
     Active Substance: VENLAFAXINE HYDROCHLORIDE
     Indication: MENTAL DISORDER
     Route: 048
  7. AMISULPRIDE [Suspect]
     Active Substance: AMISULPRIDE
     Indication: DEPRESSION
  8. VENLAFAXINE [Suspect]
     Active Substance: VENLAFAXINE HYDROCHLORIDE
     Indication: PSYCHIATRIC DISORDER PROPHYLAXIS
  9. MIRTAZAPINE. [Suspect]
     Active Substance: MIRTAZAPINE
     Indication: DEPRESSION
  10. BETALOC ZOK [Concomitant]
     Active Substance: METOPROLOL SUCCINATE
     Indication: PRODUCT USED FOR UNKNOWN INDICATION
  11. NEUROL [Concomitant]
     Indication: PRODUCT USED FOR UNKNOWN INDICATION
  12. ZOLPIDEM [Suspect]
     Active Substance: ZOLPIDEM TARTRATE
     Indication: PSYCHIATRIC DISORDER PROPHYLAXIS
     Route: 065

REACTIONS (21)
  - Metabolic acidosis [Recovered/Resolved]
  - Pulse absent [Recovered/Resolved]
  - Ventricular fibrillation [Recovered/Resolved]
  - Arrhythmia [Recovered/Resolved]
  - Myoglobin blood increased [Recovered/Resolved]
  - Mydriasis [Recovering/Resolving]
  - Muscle spasms [Recovering/Resolving]
  - Muscle rigidity [Recovered/Resolved]
  - Hyperthermia [Recovering/Resolving]
  - Disorientation [Recovering/Resolving]
  - Leukocytosis [Recovered/Resolved]
  - Confusional state [Recovering/Resolving]
  - Gait disturbance [Recovered/Resolved]
  - Pyrexia [Recovered/Resolved]
  - Movement disorder [Recovering/Resolving]
  - Ventricular tachycardia [Recovered/Resolved]
  - Musculoskeletal stiffness [Recovering/Resolving]
  - Condition aggravated [Recovered/Resolved]
  - Neuroleptic malignant syndrome [Recovering/Resolving]
  - Loss of consciousness [Recovering/Resolving]
  - Tremor [Recovering/Resolving]
